FAERS Safety Report 10899201 (Version 2)
Quarter: 2015Q2

REPORT INFORMATION
  Report Type: Spontaneous
  Country: IE (occurrence: IE)
  Receive Date: 20150309
  Receipt Date: 20150623
  Transmission Date: 20150821
  Serious: Yes (Death)
  Sender: FDA-Public Use
  Company Number: IE-BAXTER-2015BAX011932

PATIENT
  Sex: Female

DRUGS (10)
  1. SODIUM CHLORIDE. [Suspect]
     Active Substance: SODIUM CHLORIDE
     Indication: PRODUCT USED FOR UNKNOWN INDICATION
     Dosage: 7 WEEKS NIGHTLY
     Route: 065
     Dates: start: 201205
  2. ADDITRACE [Suspect]
     Active Substance: MINERALS
     Indication: PRODUCT USED FOR UNKNOWN INDICATION
     Dosage: 7 NIGHTS WEEKLY
     Route: 065
     Dates: start: 201205
  3. WATER FOR INJECTION [Suspect]
     Active Substance: WATER
     Indication: PRODUCT USED FOR UNKNOWN INDICATION
     Dosage: 7 NIGHTS WEEKLY
     Route: 065
     Dates: start: 201205
  4. GLUCOSE 50% W/V CONCENTRATE FOR SOLUTION FOR INFUSION [Suspect]
     Active Substance: DEXTROSE
     Indication: PRODUCT USED FOR UNKNOWN INDICATION
     Dosage: 7 NIGHTS WEEKLY
     Route: 065
     Dates: start: 201205
  5. CALCIUM CHLORIDE. [Suspect]
     Active Substance: CALCIUM CHLORIDE
     Indication: PRODUCT USED FOR UNKNOWN INDICATION
     Dosage: 7 NIGHTS WEEKLY
     Route: 065
     Dates: start: 201205
  6. POTASSIUM CHLORIDE. [Suspect]
     Active Substance: POTASSIUM CHLORIDE
     Indication: PRODUCT USED FOR UNKNOWN INDICATION
     Dosage: 7 NIGHTS WEEKLY
     Route: 065
     Dates: start: 201205
  7. CERNEVIT [Suspect]
     Active Substance: VITAMINS
     Indication: PRODUCT USED FOR UNKNOWN INDICATION
     Dosage: 7 NIGHTS WEEKLY
     Route: 065
     Dates: start: 201205
  8. MAGNESIUM SULFATE. [Suspect]
     Active Substance: MAGNESIUM SULFATE
     Indication: PRODUCT USED FOR UNKNOWN INDICATION
     Dosage: 7 WEEKS NIGHTLY
     Route: 065
     Dates: start: 201205
  9. SODIUM GLYCEROPHOSPHATE [Suspect]
     Active Substance: SODIUM GLYCEROPHOSPHATE
     Indication: PRODUCT USED FOR UNKNOWN INDICATION
     Dosage: 7 NIGHTS WEEKLY
     Route: 065
     Dates: start: 201205
  10. SYNTHAMIN [Suspect]
     Active Substance: AMINO ACIDS
     Indication: PRODUCT USED FOR UNKNOWN INDICATION
     Dosage: 7 NIGHTS WEEKLY
     Route: 065
     Dates: start: 201205

REACTIONS (1)
  - Death [Fatal]
